FAERS Safety Report 23002462 (Version 4)
Quarter: 2025Q3

REPORT INFORMATION
  Report Type: Report from Study
  Country: US (occurrence: US)
  Receive Date: 20230928
  Receipt Date: 20250810
  Transmission Date: 20251021
  Serious: No
  Sender: ALEXION PHARMACEUTICALS
  Company Number: 2023A217702

PATIENT
  Age: 85 Year
  Sex: Male
  Weight: 60.5 kg

DRUGS (8)
  1. OLAPARIB [Suspect]
     Active Substance: OLAPARIB
     Indication: Adenocarcinoma
     Dosage: 300 MILLIGRAM, BID
     Dates: start: 20230427, end: 20230803
  2. VUDALIMAB [Suspect]
     Active Substance: VUDALIMAB
     Indication: Adenocarcinoma
     Dates: start: 20230427, end: 20230720
  3. XANAX [Concomitant]
     Active Substance: ALPRAZOLAM
  4. ASPIRIN [Concomitant]
     Active Substance: ASPIRIN
  5. CATAPRES [Concomitant]
     Active Substance: CLONIDINE HYDROCHLORIDE
  6. ALLEGRA [Concomitant]
     Active Substance: FEXOFENADINE HYDROCHLORIDE
  7. IMDUR [Concomitant]
     Active Substance: ISOSORBIDE MONONITRATE
  8. PRINIVIL [Concomitant]
     Active Substance: LISINOPRIL

REACTIONS (1)
  - Fatigue [Recovered/Resolved]

NARRATIVE: CASE EVENT DATE: 20230808
